FAERS Safety Report 8986328 (Version 1)
Quarter: 2012Q4

REPORT INFORMATION
  Report Type: 
  Country: US (occurrence: US)
  Receive Date: 20121227
  Receipt Date: 20121227
  Transmission Date: 20130627
  Serious: Yes (Death, Other)
  Sender: FDA-Public Use
  Company Number: US-CELGENEUS-163-50794-12122304

PATIENT

DRUGS (27)
  1. VIDAZA [Suspect]
     Indication: MDS
     Dosage: 75 milligram/sq. meter
     Route: 065
  2. VIDAZA [Suspect]
     Indication: ACUTE MYELOID LEUKEMIA
  3. CYCLOPHOSPHAMIDE [Concomitant]
     Indication: MDS
     Dosage: 14.5 milligram/kilogram
     Route: 065
  4. CYCLOPHOSPHAMIDE [Concomitant]
     Indication: ACUTE MYELOID LEUKEMIA
     Dosage: 50 milligram/kilogram
     Route: 065
  5. BUSULFAN [Concomitant]
     Indication: MDS
     Route: 065
  6. BUSULFAN [Concomitant]
     Indication: ACUTE MYELOID LEUKEMIA
  7. FLUDARABINE [Concomitant]
     Indication: MDS
     Dosage: 30 milligram/sq. meter
     Route: 041
  8. FLUDARABINE [Concomitant]
     Indication: ACUTE MYELOID LEUKEMIA
  9. TREOSULFAN [Concomitant]
     Indication: MDS
     Dosage: 14 g/m2
     Route: 065
  10. TREOSULFAN [Concomitant]
     Indication: ACUTE MYELOID LEUKEMIA
  11. ANTI-CD45 [Concomitant]
     Indication: MDS
     Dosage: .5 milligram/kilogram
     Route: 065
  12. ANTI-CD45 [Concomitant]
     Indication: ACUTE MYELOID LEUKEMIA
  13. ANTI-THYMOCYTE GLOBULIN [Concomitant]
     Indication: MDS
     Dosage: 30 milligram/kilogram
     Route: 065
  14. ANTI-THYMOCYTE GLOBULIN [Concomitant]
     Indication: ACUTE MYELOID LEUKEMIA
  15. METHOTREXATE [Concomitant]
     Indication: PROPHYLAXIS AGAINST GRAFT VERSUS HOST DISEASE
     Route: 065
  16. CYCLOSPORINE [Concomitant]
     Indication: PROPHYLAXIS AGAINST GRAFT VERSUS HOST DISEASE
     Route: 065
  17. TACROLIMUS [Concomitant]
     Indication: PROPHYLAXIS AGAINST GRAFT VERSUS HOST DISEASE
     Route: 065
  18. MYCOPHENOLATE MOFETIL [Concomitant]
     Indication: PROPHYLAXIS AGAINST GRAFT VERSUS HOST DISEASE
     Route: 065
  19. METHYLPREDNISOLONE [Concomitant]
     Indication: PROPHYLAXIS AGAINST GRAFT VERSUS HOST DISEASE
     Dosage: 1-2 mg/kg
     Route: 065
  20. ACYCLOVIR [Concomitant]
     Indication: PROPHYLAXIS
     Route: 065
  21. VORICONAZOLE [Concomitant]
     Indication: PROPHYLAXIS
     Route: 065
  22. FLUCONAZOLE [Concomitant]
     Indication: PROPHYLAXIS
     Route: 065
  23. TRIMETHOPRIM/SULFAMETHOXASOLE [Concomitant]
     Indication: PNEUMOCYSTIS JIROVECI INFECTION
     Route: 065
  24. DAPSON [Concomitant]
     Indication: PNEUMOCYSTIS JIROVECI INFECTION
     Route: 065
  25. GANCICLOVIR [Concomitant]
     Indication: CYTOMEGALOVIRUS INFECTION REACTIVATION
     Route: 065
  26. VALGANCICLOVIR [Concomitant]
     Indication: CYTOMEGALOVIRUS INFECTION REACTIVATION
     Route: 065
  27. FOSCARNET [Concomitant]
     Indication: CYTOMEGALOVIRUS INFECTION REACTIVATION
     Route: 065

REACTIONS (7)
  - Infection [Fatal]
  - Multi-organ failure [Fatal]
  - Graft versus host disease [Fatal]
  - Completed suicide [Fatal]
  - Recurrent cancer [Fatal]
  - Acute graft versus host disease [Unknown]
  - Graft versus host disease [Unknown]
